FAERS Safety Report 6113991-8 (Version None)
Quarter: 2009Q1

REPORT INFORMATION
  Report Type: 
  Country: None (occurrence: None)
  Receive Date: 20090312
  Receipt Date: 20081118
  Transmission Date: 20090719
  Serious: No
  Sender: FDA-Public Use
  Company Number: US-ABBOTT-08P-163-0488755-00

PATIENT
  Sex: Female
  Weight: 81.72 kg

DRUGS (3)
  1. LUPRON DEPOT [Suspect]
     Indication: MENOPAUSE
     Route: 030
     Dates: start: 20070901, end: 20080801
  2. LUPRON DEPOT [Suspect]
     Route: 030
     Dates: start: 20070701, end: 20070801
  3. LEVOCETIRIZINE DIHYDROCHLORIDE [Concomitant]
     Indication: DRUG THERAPY
     Route: 048

REACTIONS (2)
  - HOT FLUSH [None]
  - MENORRHAGIA [None]
